FAERS Safety Report 25299741 (Version 1)
Quarter: 2025Q2

REPORT INFORMATION
  Report Type: Spontaneous
  Country: US (occurrence: US)
  Receive Date: 20250512
  Receipt Date: 20250512
  Transmission Date: 20250717
  Serious: No
  Sender: JOHNSON AND JOHNSON
  Company Number: US-JNJFOC-20250429065

PATIENT
  Age: 5 Year
  Sex: Male

DRUGS (2)
  1. RISPERDAL [Suspect]
     Active Substance: RISPERIDONE
     Indication: Mood swings
     Route: 048
     Dates: start: 20111005
  2. RISPERDAL [Suspect]
     Active Substance: RISPERIDONE
     Route: 048
     Dates: start: 20120120

REACTIONS (2)
  - Off label use [Unknown]
  - Sleep disorder [Unknown]

NARRATIVE: CASE EVENT DATE: 20111005
